FAERS Safety Report 8953609 (Version 1)
Quarter: 2012Q4

REPORT INFORMATION
  Report Type: 
  Country: BO (occurrence: BO)
  Receive Date: 20121206
  Receipt Date: 20121206
  Transmission Date: 20130627
  Serious: Yes (Death)
  Sender: FDA-Public Use
  Company Number: BO-PFIZER INC-2012306406

PATIENT
  Age: 50 Year
  Sex: Female

DRUGS (1)
  1. NORVASC [Suspect]
     Dosage: 10 mg, 1x/day
     Route: 048

REACTIONS (1)
  - Cardiac failure [Fatal]
